FAERS Safety Report 20230942 (Version 1)
Quarter: 2021Q4

REPORT INFORMATION
  Report Type: Spontaneous
  Country: DE (occurrence: DE)
  Receive Date: 20211227
  Receipt Date: 20211227
  Transmission Date: 20220303
  Serious: Yes (Hospitalization, Other)
  Sender: FDA-Public Use
  Company Number: None

PATIENT
  Age: 24 Year
  Sex: Female

DRUGS (1)
  1. ENBREL [Suspect]
     Active Substance: ETANERCEPT
     Indication: Product used for unknown indication
     Dosage: 1 DF, WEEKLY
     Route: 058

REACTIONS (4)
  - Pyrexia [Recovering/Resolving]
  - Dysuria [Recovering/Resolving]
  - Flank pain [Recovering/Resolving]
  - Pyelonephritis [Recovering/Resolving]
